FAERS Safety Report 7717308-4 (Version None)
Quarter: 2011Q3

REPORT INFORMATION
  Report Type: 
  Country: None (occurrence: None)
  Receive Date: 20110826
  Receipt Date: 20110826
  Transmission Date: 20111222
  Serious: Yes (Hospitalization)
  Sender: FDA-Public Use
  Company Number: None

PATIENT
  Sex: Female

DRUGS (3)
  1. NIFEDIPINE [Concomitant]
  2. CLONIDINE [Suspect]
     Indication: HYPERTENSION
     Dosage: CLONIDINE 2MG 1 TID PO
     Route: 048
     Dates: start: 20110701, end: 20110820
  3. CARVEDILOL [Concomitant]

REACTIONS (3)
  - LETHARGY [None]
  - MENTAL STATUS CHANGES [None]
  - CONFUSIONAL STATE [None]
